FAERS Safety Report 7744406-1 (Version None)
Quarter: 2011Q3

REPORT INFORMATION
  Report Type: 
  Country: None (occurrence: None)
  Receive Date: 20110912
  Receipt Date: 20110902
  Transmission Date: 20111222
  Serious: Yes (Hospitalization)
  Sender: FDA-Public Use
  Company Number: US-US-EMD SERONO, INC.-7080743

PATIENT
  Sex: Female

DRUGS (2)
  1. CYMBALTA [Concomitant]
     Indication: ANXIETY
  2. REBIF [Suspect]
     Indication: MULTIPLE SCLEROSIS
     Route: 058
     Dates: start: 20100828, end: 20110501

REACTIONS (5)
  - MULTIPLE SCLEROSIS RELAPSE [None]
  - HEART RATE INCREASED [None]
  - ANXIETY [None]
  - FATIGUE [None]
  - HYPOTENSION [None]
